FAERS Safety Report 4413665-5 (Version None)
Quarter: 2004Q2

REPORT INFORMATION
  Report Type: 
  Country: None (occurrence: None)
  Receive Date: 20040630
  Receipt Date: 20040428
  Transmission Date: 20050107
  Serious: No
  Sender: FDA-Public Use
  Company Number: 04P-163-0259021-00

PATIENT
  Age: 61 Year
  Sex: Female
  Weight: 64.8644 kg

DRUGS (6)
  1. HUMIRA [Suspect]
     Indication: RHEUMATOID ARTHRITIS
     Dosage: 40 MG, 1 IN 2 WK, SUBCUTANEOUS
     Route: 058
     Dates: start: 20031201
  2. CELECOXIB [Concomitant]
  3. LEVOTHYROXINE SODIUM [Concomitant]
  4. RABEPRAZOE SODIUM [Concomitant]
  5. DOMPERIDONE [Concomitant]
  6. MEGASTROL [Concomitant]

REACTIONS (4)
  - INJECTION SITE ERYTHEMA [None]
  - INJECTION SITE PAIN [None]
  - INJECTION SITE SWELLING [None]
  - RHEUMATOID ARTHRITIS [None]
